FAERS Safety Report 6002611-9 (Version None)
Quarter: 2008Q4

REPORT INFORMATION
  Report Type: 
  Country: None (occurrence: None)
  Receive Date: 20081215
  Receipt Date: 20071119
  Transmission Date: 20090506
  Serious: No
  Sender: FDA-Public Use
  Company Number: PR-AMGEN-KDL253297

PATIENT
  Sex: Female

DRUGS (3)
  1. ENBREL [Suspect]
     Indication: ANKYLOSING SPONDYLITIS
     Route: 058
     Dates: start: 20071019
  2. METHOTREXATE [Concomitant]
     Route: 058
  3. PLAQUENIL [Concomitant]

REACTIONS (5)
  - COUGH [None]
  - ERYTHEMA [None]
  - FATIGUE [None]
  - HYPERHIDROSIS [None]
  - PAIN [None]
